FAERS Safety Report 19281606 (Version 4)
Quarter: 2022Q1

REPORT INFORMATION
  Report Type: Spontaneous
  Country: US (occurrence: US)
  Receive Date: 20210521
  Receipt Date: 20220310
  Transmission Date: 20220424
  Serious: Yes (Other)
  Sender: FDA-Public Use
  Company Number: US-BIOCODEX2-2021000229

PATIENT

DRUGS (4)
  1. DIACOMIT [Suspect]
     Active Substance: STIRIPENTOL
     Indication: Severe myoclonic epilepsy of infancy
     Dosage: 750 MG, QD (250MG, THREE TIMES A DAY.)
     Route: 065
     Dates: start: 20210113
  2. DIACOMIT [Suspect]
     Active Substance: STIRIPENTOL
     Dosage: 1500 MG, QD (500MG, THREE TIMES A DAY.)
     Route: 065
     Dates: start: 20210115
  3. DIACOMIT [Suspect]
     Active Substance: STIRIPENTOL
     Dosage: 2250 MG, QD (750 THREE TIMES A DAY.)
     Route: 065
  4. ONFI [Concomitant]
     Active Substance: CLOBAZAM
     Indication: Severe myoclonic epilepsy of infancy
     Route: 065

REACTIONS (3)
  - Seizure [Unknown]
  - Abdominal pain upper [Unknown]
  - Impulsive behaviour [Not Recovered/Not Resolved]

NARRATIVE: CASE EVENT DATE: 20210113
